FAERS Safety Report 17363803 (Version 2)
Quarter: 2020Q1

REPORT INFORMATION
  Report Type: Spontaneous
  Country: US (occurrence: US)
  Receive Date: 20200203
  Receipt Date: 20200214
  Transmission Date: 20200409
  Serious: Yes (Hospitalization)
  Sender: FDA-Public Use
  Company Number: US-INCYTE CORPORATION-2020IN001024

PATIENT

DRUGS (3)
  1. JAKAFI [Suspect]
     Active Substance: RUXOLITINIB
     Dosage: 15MG/30MG AM/PM
     Route: 048
     Dates: start: 20200131
  2. JAKAFI [Suspect]
     Active Substance: RUXOLITINIB
     Dosage: 5MG QAM; 10MG QHS
     Route: 048
     Dates: start: 20200130
  3. JAKAFI [Suspect]
     Active Substance: RUXOLITINIB
     Indication: POLYCYTHAEMIA VERA
     Dosage: 5MG QAM; 10MG QPM
     Route: 048

REACTIONS (2)
  - Alopecia [Unknown]
  - Dizziness [Unknown]

NARRATIVE: CASE EVENT DATE: 20191220
